FAERS Safety Report 25325284 (Version 2)
Quarter: 2025Q3

REPORT INFORMATION
  Report Type: Spontaneous
  Country: CA (occurrence: CA)
  Receive Date: 20250516
  Receipt Date: 20250905
  Transmission Date: 20251021
  Serious: Yes (Hospitalization, Other)
  Sender: JOHNSON AND JOHNSON
  Company Number: CA-BAYER-2024A065034

PATIENT
  Age: 94 Year
  Sex: Male
  Weight: 77 kg

DRUGS (5)
  1. XARELTO [Suspect]
     Active Substance: RIVAROXABAN
     Indication: Product used for unknown indication
  2. ENOXAPARIN [Suspect]
     Active Substance: ENOXAPARIN
     Indication: Product used for unknown indication
  3. ARGATROBAN [Concomitant]
     Active Substance: ARGATROBAN
     Indication: Product used for unknown indication
  4. AMOXICILLIN [Concomitant]
     Active Substance: AMOXICILLIN
     Indication: Product used for unknown indication
  5. BISOPROLOL [Concomitant]
     Active Substance: BISOPROLOL
     Indication: Product used for unknown indication

REACTIONS (9)
  - Haematoma muscle [Recovering/Resolving]
  - Haemoglobin decreased [Recovered/Resolved]
  - Haematoma [Recovering/Resolving]
  - Thrombocytopenia [Recovering/Resolving]
  - Thrombosis [Recovering/Resolving]
  - Adrenal thrombosis [Recovering/Resolving]
  - Secondary adrenocortical insufficiency [Recovering/Resolving]
  - Anaemia [Recovered/Resolved]
  - Haemorrhage [Recovered/Resolved]
